FAERS Safety Report 13231460 (Version 2)
Quarter: 2017Q1

REPORT INFORMATION
  Report Type: Spontaneous
  Country: US (occurrence: US)
  Receive Date: 20170214
  Receipt Date: 20170309
  Transmission Date: 20170428
  Serious: Yes (Other)
  Sender: FDA-Public Use
  Company Number: US-BAYER-2017-029392

PATIENT
  Age: 25 Year
  Sex: Female
  Weight: 52.15 kg

DRUGS (1)
  1. SKYLA [Suspect]
     Active Substance: LEVONORGESTREL
     Indication: CONTRACEPTION
     Dosage: 14 MCG/24HR, CONT
     Route: 015
     Dates: start: 2015, end: 20170103

REACTIONS (5)
  - Ruptured ectopic pregnancy [Unknown]
  - Drug ineffective [None]
  - Pain [None]
  - Haemorrhage in pregnancy [Unknown]
  - Ectopic pregnancy with contraceptive device [Unknown]
